FAERS Safety Report 25634173 (Version 1)
Quarter: 2025Q3

REPORT INFORMATION
  Report Type: Spontaneous
  Country: US (occurrence: US)
  Receive Date: 20250801
  Receipt Date: 20250801
  Transmission Date: 20251020
  Serious: No
  Sender: CHATTEM
  Company Number: US-OPELLA-2025OHG023264

PATIENT

DRUGS (1)
  1. NICODERM CQ [Suspect]
     Active Substance: NICOTINE
     Indication: Smoking cessation therapy
     Route: 061
     Dates: end: 20250727

REACTIONS (3)
  - Application site urticaria [Unknown]
  - Vascular rupture [Unknown]
  - Product adhesion issue [Unknown]

NARRATIVE: CASE EVENT DATE: 20250701
